FAERS Safety Report 21861881 (Version 1)
Quarter: 2023Q1

REPORT INFORMATION
  Report Type: Spontaneous
  Country: US (occurrence: US)
  Receive Date: 20230113
  Receipt Date: 20230113
  Transmission Date: 20230418
  Serious: No
  Sender: FDA-Public Use
  Company Number: US-009507513-2212USA005964

PATIENT
  Age: 60 Year
  Sex: Male

DRUGS (8)
  1. TEMODAR [Suspect]
     Active Substance: TEMOZOLOMIDE
     Indication: Glioblastoma
     Dosage: 50 MILLIGRAM/SQ. METER, THERAPY INITIATION
     Route: 048
  2. TEMODAR [Suspect]
     Active Substance: TEMOZOLOMIDE
     Dosage: 100 MILLIGRAM, TIW, AFTER DIALYSIS
     Route: 048
  3. TEMODAR [Suspect]
     Active Substance: TEMOZOLOMIDE
     Dosage: 100 MILLIGRAM, QD, DOSE INCREASED
     Route: 048
  4. TEMODAR [Suspect]
     Active Substance: TEMOZOLOMIDE
     Dosage: 140 MILLIGRAM
     Route: 048
  5. TEMODAR [Suspect]
     Active Substance: TEMOZOLOMIDE
     Dosage: 280 MILLIGRAM, DAYS 1-5 OF A 28-DAY CYCLE; 150 MG/M2
     Route: 048
  6. TEMODAR [Suspect]
     Active Substance: TEMOZOLOMIDE
     Dosage: 360 MILLIGRAM, QD; 200 MG/M2; SECOND CYCLE ON DAYS 1-5
     Route: 048
  7. ONDANSETRON [Concomitant]
     Active Substance: ONDANSETRON
     Indication: Nausea
  8. DEXAMETHASONE [Concomitant]
     Active Substance: DEXAMETHASONE
     Indication: Nausea

REACTIONS (3)
  - Incorrect dose administered [Unknown]
  - Drug titration error [Unknown]
  - No adverse event [Unknown]
